FAERS Safety Report 9928146 (Version 1)
Quarter: 2014Q1

REPORT INFORMATION
  Report Type: Report from Study
  Country: US (occurrence: US)
  Receive Date: 20140227
  Receipt Date: 20140227
  Transmission Date: 20141002
  Serious: Yes (Other)
  Sender: FDA-Public Use
  Company Number: US-ROCHE-1329727

PATIENT
  Sex: Male
  Weight: 46.31 kg

DRUGS (11)
  1. LUCENTIS [Suspect]
     Indication: AGE-RELATED MACULAR DEGENERATION
     Dosage: LUCENTIS WAS GIVEN ON FOLLOWING DATES:01/JUL/2009, 29/JUL/2009, 26/AUG/2009, 30/SEP/2009, 08/MAR/201
     Route: 050
  2. AVASTIN [Suspect]
     Indication: PRODUCT USED FOR UNKNOWN INDICATION
     Route: 047
     Dates: start: 20091208
  3. ASPIRIN [Concomitant]
     Dosage: EVERY OTHER DAY
     Route: 065
     Dates: start: 20091208
  4. LISINOPRIL [Concomitant]
     Route: 065
  5. OMEPRAZOLE [Concomitant]
     Dosage: PRN
     Route: 065
  6. PRESERVISION AREDS [Concomitant]
     Route: 065
  7. SIMVASTATIN [Concomitant]
     Route: 065
  8. SYSTANE [Concomitant]
  9. MYDRIACYL [Concomitant]
     Route: 065
  10. ACTOS [Concomitant]
     Dosage: EVERY OTHER DAY
     Route: 065
  11. TERAZOSIN [Concomitant]

REACTIONS (6)
  - Eye pruritus [Unknown]
  - Eye pain [Unknown]
  - Glare [Unknown]
  - Vision blurred [Unknown]
  - Subretinal fluid [Unknown]
  - Vitreous floaters [Unknown]
